FAERS Safety Report 19907849 (Version 2)
Quarter: 2021Q4

REPORT INFORMATION
  Report Type: Spontaneous
  Country: US (occurrence: US)
  Receive Date: 20210930
  Receipt Date: 20211006
  Transmission Date: 20220303
  Serious: No
  Sender: FDA-Public Use
  Company Number: US-ORGANON-O2109USA001864

PATIENT
  Sex: Female

DRUGS (2)
  1. SINGULAIR [Suspect]
     Active Substance: MONTELUKAST SODIUM
     Dosage: 1 DAILY
     Route: 048
     Dates: start: 202109
  2. SINGULAIR [Suspect]
     Active Substance: MONTELUKAST SODIUM
     Dosage: UNK
     Route: 048
     Dates: end: 2021

REACTIONS (4)
  - Product physical issue [Unknown]
  - Product physical issue [Unknown]
  - Poor quality product administered [Unknown]
  - Product packaging issue [Unknown]

NARRATIVE: CASE EVENT DATE: 20210801
